FAERS Safety Report 5105212-X (Version None)
Quarter: 2006Q3

REPORT INFORMATION
  Report Type: 
  Country: None (occurrence: None)
  Receive Date: 20060911
  Receipt Date: 20060829
  Transmission Date: 20061208
  Serious: Yes (Other)
  Sender: FDA-Public Use
  Company Number: 2006-147192-NL

PATIENT
  Age: 32 Year
  Sex: Female

DRUGS (2)
  1. NUVARING [Suspect]
     Indication: CONTRACEPTION
     Dosage: VAGINAL
     Route: 067
     Dates: start: 20060731
  2. MULTILPLE MEDICATIONS [Concomitant]

REACTIONS (3)
  - AMENORRHOEA [None]
  - CONSTIPATION [None]
  - CONTRACEPTIVE DEVICE COMPLICATION [None]
